FAERS Safety Report 7201467-6 (Version None)
Quarter: 2010Q4

REPORT INFORMATION
  Report Type: 
  Country: None (occurrence: None)
  Receive Date: 20101215
  Receipt Date: 20101203
  Transmission Date: 20110411
  Serious: No
  Sender: FDA-Public Use
  Company Number: TIF2010A00140

PATIENT
  Sex: Male

DRUGS (1)
  1. LANSOPRAZOLE [Suspect]

REACTIONS (2)
  - OVERDOSE [None]
  - SUICIDE ATTEMPT [None]
